FAERS Safety Report 5847737-5 (Version None)
Quarter: 2008Q3

REPORT INFORMATION
  Report Type: 
  Country: None (occurrence: None)
  Receive Date: 20080814
  Receipt Date: 20080728
  Transmission Date: 20090109
  Serious: Yes (Other)
  Sender: FDA-Public Use
  Company Number: 8023440

PATIENT
  Age: 28 Year
  Sex: Female
  Weight: 51 kg

DRUGS (4)
  1. XYZAL [Suspect]
     Indication: DYSPHONIA
     Dosage: 5 MG 1/D PO
     Route: 048
     Dates: start: 20070212, end: 20070213
  2. XYZAL [Suspect]
     Indication: RASH
     Dosage: 5 MG 1/D PO
     Route: 048
     Dates: start: 20070212, end: 20070213
  3. TAVEGYL /00137201/ [Suspect]
     Indication: DYSPHONIA
     Dosage: 1 MG 1/D IV
     Route: 042
     Dates: start: 20070212, end: 20070212
  4. TAVEGYL /00137201/ [Suspect]
     Indication: RASH
     Dosage: 1 MG 1/D IV
     Route: 042
     Dates: start: 20070212, end: 20070212

REACTIONS (3)
  - DRUG EXPOSURE DURING PREGNANCY [None]
  - HABITUAL ABORTION [None]
  - MATERNAL DRUGS AFFECTING FOETUS [None]
